FAERS Safety Report 4831195-3 (Version None)
Quarter: 2005Q4

REPORT INFORMATION
  Report Type: 
  Country: None (occurrence: None)
  Receive Date: 20051118
  Receipt Date: 20051109
  Transmission Date: 20060501
  Serious: Yes (Hospitalization)
  Sender: FDA-Public Use
  Company Number: US-JNJFOC-20051102878

PATIENT
  Age: 32 Year
  Sex: Female

DRUGS (7)
  1. DURAGESIC-100 [Suspect]
     Dosage: TREATMENT STARTED TWO YEARS AGO.
     Route: 062
  2. HYDROMORPHONE HCL [Suspect]
     Indication: PAIN
     Route: 048
     Dates: start: 20040401
  3. NEURONTIN [Concomitant]
  4. KLONOPIN [Concomitant]
  5. CYMBALTA [Concomitant]
  6. AVONEX [Concomitant]
  7. SOLU-MEDROL [Concomitant]
     Dosage: TREATMENT FOR TWO YEARS.

REACTIONS (4)
  - BRADYCARDIA [None]
  - CHEST PAIN [None]
  - HEADACHE [None]
  - MULTIPLE SCLEROSIS [None]
